FAERS Safety Report 6274792-3 (Version None)
Quarter: 2009Q3

REPORT INFORMATION
  Report Type: 
  Country: None (occurrence: None)
  Receive Date: 20090721
  Receipt Date: 20090710
  Transmission Date: 20100115
  Serious: Yes (Hospitalization)
  Sender: FDA-Public Use
  Company Number: US-ELI_LILLY_AND_COMPANY-US200902007717

PATIENT
  Age: 82 Year
  Sex: Male
  Weight: 53.061 kg

DRUGS (5)
  1. HUMATROPE [Suspect]
     Indication: HYPOPITUITARISM
     Dosage: 0.3 MG, DAILY (1/D)
     Dates: start: 20060101
  2. PREDNISONE TAB [Concomitant]
     Indication: HYPOPITUITARISM
     Dosage: 5 MG, DAILY (1/D)
  3. DESMOPRESSIN ACETATE [Concomitant]
     Indication: HYPOPITUITARISM
     Dosage: 0.1 MG, DAILY (1/D)
  4. ENALAPRIL MALEATE [Concomitant]
     Indication: BLOOD PRESSURE INCREASED
     Dosage: UNK, UNKNOWN
  5. FERROUS SULFATE TAB [Concomitant]
     Dosage: 325 MG, UNKNOWN

REACTIONS (2)
  - ATRIOVENTRICULAR BLOCK FIRST DEGREE [None]
  - ISCHAEMIC STROKE [None]
